FAERS Safety Report 8515866-3 (Version None)
Quarter: 2012Q3

REPORT INFORMATION
  Report Type: 
  Country: None (occurrence: None)
  Receive Date: 20120717
  Receipt Date: 20120706
  Transmission Date: 20120928
  Serious: Yes (Other)
  Sender: FDA-Public Use
  Company Number: GB-TEVA-347426ISR

PATIENT
  Age: 62 Year
  Sex: Female
  Weight: 66 kg

DRUGS (4)
  1. CITALOPRAM HYDROBROMIDE [Suspect]
     Indication: DEPRESSION
     Route: 048
     Dates: start: 20090625
  2. ACETAMINOPHEN [Concomitant]
     Indication: ARTHRALGIA
     Dosage: ONGOING
     Route: 048
  3. ZOPICLONE [Concomitant]
     Indication: SLEEP DISORDER
     Route: 048
     Dates: start: 20090625
  4. GLUCOSAMINE WITH CHONDROITIN [Concomitant]
     Indication: ARTHRITIS
     Dosage: 500MG AND 400MG, ONGOING
     Route: 048

REACTIONS (3)
  - ONYCHOCLASIS [None]
  - NAIL RIDGING [None]
  - NAIL DISORDER [None]
